FAERS Safety Report 25427841 (Version 4)
Quarter: 2025Q3

REPORT INFORMATION
  Report Type: Spontaneous
  Country: US (occurrence: US)
  Receive Date: 20250612
  Receipt Date: 20250915
  Transmission Date: 20251020
  Serious: No
  Sender: AJANTA PHARMA USA INC
  Company Number: US-AJANTA-2025AJA00074

PATIENT
  Age: 57 Year
  Sex: Male
  Weight: 300 kg

DRUGS (8)
  1. DULOXETINE [Suspect]
     Active Substance: DULOXETINE
     Indication: Depression
     Dates: start: 20250522, end: 202505
  2. DULOXETINE [Suspect]
     Active Substance: DULOXETINE
     Indication: Neuralgia
     Dates: start: 202505, end: 202506
  3. DULOXETINE [Suspect]
     Active Substance: DULOXETINE
     Indication: Anxiety
     Dates: start: 202507, end: 2025
  4. DULOXETINE [Suspect]
     Active Substance: DULOXETINE
     Dates: start: 20250801, end: 202508
  5. DULOXETINE [Suspect]
     Active Substance: DULOXETINE
     Dates: start: 20250812, end: 202508
  6. LEVOTHYROXINE [Concomitant]
     Active Substance: LEVOTHYROXINE
  7. LIOTHYRONINE [Concomitant]
     Active Substance: LIOTHYRONINE
     Dosage: WITH AN EMPTY STOMACH
  8. ASPIRIN [Concomitant]
     Active Substance: ASPIRIN

REACTIONS (9)
  - Ocular discomfort [Recovering/Resolving]
  - Dizziness [Recovering/Resolving]
  - Headache [Recovered/Resolved]
  - Disturbance in attention [Unknown]
  - Vision blurred [Unknown]
  - Drug ineffective [Unknown]
  - Product dose omission issue [Unknown]
  - Incorrect dose administered [Unknown]
  - Product substitution issue [Unknown]

NARRATIVE: CASE EVENT DATE: 20250501
